FAERS Safety Report 5418262-0 (Version None)
Quarter: 2007Q3

REPORT INFORMATION
  Report Type: 
  Country: None (occurrence: None)
  Receive Date: 20070817
  Receipt Date: 20070815
  Transmission Date: 20080115
  Serious: Yes (Death, Life-Threatening, Disabling)
  Sender: FDA-Public Use
  Company Number: B0478432A

PATIENT
  Age: 73 Year
  Sex: Male

DRUGS (13)
  1. ARTIST [Suspect]
     Indication: CARDIAC FAILURE CHRONIC
     Route: 048
     Dates: start: 20041020, end: 20070702
  2. DIGOSIN [Concomitant]
     Indication: DRUG USE FOR UNKNOWN INDICATION
     Route: 065
     Dates: start: 19980220
  3. LUPRAC [Concomitant]
     Indication: DRUG USE FOR UNKNOWN INDICATION
     Route: 065
     Dates: start: 20020807
  4. RENIVACE [Concomitant]
     Indication: DRUG USE FOR UNKNOWN INDICATION
     Route: 065
     Dates: start: 19980220
  5. ALLOPURINOL [Concomitant]
     Indication: DRUG USE FOR UNKNOWN INDICATION
     Route: 065
  6. AMARYL [Concomitant]
     Indication: DRUG USE FOR UNKNOWN INDICATION
     Route: 065
     Dates: start: 20040714, end: 20070702
  7. WARFARIN [Concomitant]
     Indication: DRUG USE FOR UNKNOWN INDICATION
     Route: 065
     Dates: start: 19980220, end: 20070702
  8. ALDACTONE [Concomitant]
     Indication: DRUG USE FOR UNKNOWN INDICATION
     Route: 065
     Dates: start: 19980220, end: 20070702
  9. FAMOTIDINE [Concomitant]
     Indication: DRUG USE FOR UNKNOWN INDICATION
     Route: 065
  10. SIGMART [Concomitant]
     Indication: DRUG USE FOR UNKNOWN INDICATION
     Route: 065
     Dates: start: 20070519, end: 20070702
  11. SELBEX [Concomitant]
     Indication: DRUG USE FOR UNKNOWN INDICATION
     Route: 065
  12. BASEN [Concomitant]
     Indication: DRUG USE FOR UNKNOWN INDICATION
     Route: 065
     Dates: start: 20010919, end: 20070702
  13. NITOROL R [Concomitant]
     Dates: start: 19980220, end: 20070519

REACTIONS (8)
  - APALLIC SYNDROME [None]
  - ARRHYTHMIA [None]
  - BLOOD PRESSURE DECREASED [None]
  - BRADYCARDIA [None]
  - CARDIAC FAILURE [None]
  - CARDIO-RESPIRATORY ARREST [None]
  - DYSPNOEA [None]
  - ENCEPHALOPATHY [None]
